FAERS Safety Report 25155823 (Version 2)
Quarter: 2025Q2

REPORT INFORMATION
  Report Type: Spontaneous
  Country: CA (occurrence: CA)
  Receive Date: 20250403
  Receipt Date: 20250603
  Transmission Date: 20250717
  Serious: Yes (Death, Life-Threatening, Hospitalization, Disabling, Other)
  Sender: MYLAN
  Company Number: CA-MYLANLABS-2025M1014334

PATIENT
  Age: 44 Year
  Sex: Female
  Weight: 97 kg

DRUGS (472)
  1. LYRICA [Suspect]
     Active Substance: PREGABALIN
     Indication: Product used for unknown indication
  2. MORPHINE [Suspect]
     Active Substance: MORPHINE
     Indication: Product used for unknown indication
  3. CELECOXIB [Suspect]
     Active Substance: CELECOXIB
     Indication: Product used for unknown indication
  4. CELECOXIB [Suspect]
     Active Substance: CELECOXIB
  5. CELECOXIB [Suspect]
     Active Substance: CELECOXIB
     Dosage: 1 DOSAGE FORM, QD (1 EVERY 1 DAYS)
  6. CELECOXIB [Suspect]
     Active Substance: CELECOXIB
     Dosage: 2 DOSAGE FORM, QD (1 EVERY 1 DY)
  7. CELEBREX [Suspect]
     Active Substance: CELECOXIB
     Indication: Arthritis
     Dosage: UNK, QD (1 EVERY 1 DAY)
  8. CELEBREX [Suspect]
     Active Substance: CELECOXIB
     Indication: Arthritis
     Dosage: UNK, QD (1 EVERY 1 DAY)
  9. CELEBREX [Suspect]
     Active Substance: CELECOXIB
     Dosage: 1 DOSAGE FORM, QD (1 EVERY 1 DAY)
  10. CELEBREX [Suspect]
     Active Substance: CELECOXIB
     Dosage: 2 DOSAGE FORM, QD (1 EVERY 1 DAY)
  11. CELECOXIB [Suspect]
     Active Substance: CELECOXIB
     Indication: Product used for unknown indication
     Dosage: 1 DOSAGE FORM, QD (1 EVERY 1 DAY)
  12. CELECOXIB [Suspect]
     Active Substance: CELECOXIB
  13. CELECOXIB [Suspect]
     Active Substance: CELECOXIB
  14. VITAMIN C [Suspect]
     Active Substance: ASCORBIC ACID
     Indication: Product used for unknown indication
  15. ACETAMINOPHEN [Suspect]
     Active Substance: ACETAMINOPHEN
     Indication: Product used for unknown indication
  16. ACETAMINOPHEN [Suspect]
     Active Substance: ACETAMINOPHEN
  17. ACETAMINOPHEN [Suspect]
     Active Substance: ACETAMINOPHEN
  18. ACETAMINOPHEN [Suspect]
     Active Substance: ACETAMINOPHEN
  19. ACETAMINOPHEN\CODEINE PHOSPHATE [Suspect]
     Active Substance: ACETAMINOPHEN\CODEINE PHOSPHATE
     Indication: Product used for unknown indication
  20. ACETAMINOPHEN\OXYCODONE HYDROCHLORIDE [Suspect]
     Active Substance: ACETAMINOPHEN\OXYCODONE HYDROCHLORIDE
     Indication: Product used for unknown indication
  21. ACTEMRA [Suspect]
     Active Substance: TOCILIZUMAB
     Indication: Rheumatoid arthritis
  22. ACTEMRA [Suspect]
     Active Substance: TOCILIZUMAB
     Indication: Rheumatoid arthritis
  23. ACTEMRA [Suspect]
     Active Substance: TOCILIZUMAB
     Indication: Rheumatoid arthritis
  24. ACTEMRA [Suspect]
     Active Substance: TOCILIZUMAB
  25. ACTEMRA [Suspect]
     Active Substance: TOCILIZUMAB
  26. ACTEMRA [Suspect]
     Active Substance: TOCILIZUMAB
  27. ACTEMRA [Suspect]
     Active Substance: TOCILIZUMAB
     Indication: Rheumatoid arthritis
  28. ACTEMRA [Suspect]
     Active Substance: TOCILIZUMAB
  29. ACTIFED (PSEUDOEPHEDRINE HYDROCHLORIDE\TRIPROLIDINE HYDROCHLORIDE) [Suspect]
     Active Substance: PSEUDOEPHEDRINE HYDROCHLORIDE\TRIPROLIDINE HYDROCHLORIDE
     Indication: Product used for unknown indication
  30. ADALIMUMAB [Suspect]
     Active Substance: ADALIMUMAB
     Indication: Rheumatoid arthritis
  31. ADALIMUMAB [Suspect]
     Active Substance: ADALIMUMAB
  32. ADALIMUMAB [Suspect]
     Active Substance: ADALIMUMAB
  33. ALENDRONATE SODIUM [Suspect]
     Active Substance: ALENDRONATE SODIUM
     Indication: Rheumatoid arthritis
  34. ALENDRONATE SODIUM [Suspect]
     Active Substance: ALENDRONATE SODIUM
  35. ALENDRONATE SODIUM [Suspect]
     Active Substance: ALENDRONATE SODIUM
  36. ALENDRONATE SODIUM\CHOLECALCIFEROL [Suspect]
     Active Substance: ALENDRONATE SODIUM\CHOLECALCIFEROL
     Indication: Rheumatoid arthritis
  37. ALENDRONIC ACID [Suspect]
     Active Substance: ALENDRONIC ACID
     Indication: Rheumatoid arthritis
  38. ALENDRONIC ACID [Suspect]
     Active Substance: ALENDRONIC ACID
  39. ALENDRONIC ACID [Suspect]
     Active Substance: ALENDRONIC ACID
     Indication: Rheumatoid arthritis
  40. PANTOPRAZOLE SODIUM ANHYDROUS [Suspect]
     Active Substance: PANTOPRAZOLE SODIUM ANHYDROUS
     Indication: Product used for unknown indication
  41. PREDNISONE [Suspect]
     Active Substance: PREDNISONE
     Indication: Rheumatoid arthritis
  42. PREDNISONE [Suspect]
     Active Substance: PREDNISONE
  43. PREDNISONE [Suspect]
     Active Substance: PREDNISONE
  44. PREDNISONE [Suspect]
     Active Substance: PREDNISONE
  45. PREDNISONE [Suspect]
     Active Substance: PREDNISONE
     Indication: Rheumatoid arthritis
  46. APREMILAST [Suspect]
     Active Substance: APREMILAST
     Indication: Product used for unknown indication
  47. APREMILAST [Suspect]
     Active Substance: APREMILAST
  48. APREMILAST [Suspect]
     Active Substance: APREMILAST
  49. APREMILAST [Suspect]
     Active Substance: APREMILAST
  50. ARAVA [Suspect]
     Active Substance: LEFLUNOMIDE
     Indication: Rheumatoid arthritis
  51. ARAVA [Suspect]
     Active Substance: LEFLUNOMIDE
  52. ARAVA [Suspect]
     Active Substance: LEFLUNOMIDE
  53. BORAGE OIL [Suspect]
     Active Substance: BORAGE OIL
     Indication: Product used for unknown indication
  54. CALCIUM CARBONATE [Suspect]
     Active Substance: CALCIUM CARBONATE
     Indication: Product used for unknown indication
  55. CALCIUM CARBONATE [Suspect]
     Active Substance: CALCIUM CARBONATE
  56. CALCIUM CARBONATE\CHOLECALCIFEROL [Suspect]
     Active Substance: CALCIUM CARBONATE\CHOLECALCIFEROL
     Indication: Product used for unknown indication
  57. CALCIUM GLUBIONATE [Suspect]
     Active Substance: CALCIUM GLUBIONATE
     Indication: Product used for unknown indication
  58. CETIRIZINE [Suspect]
     Active Substance: CETIRIZINE HYDROCHLORIDE
     Indication: Rheumatoid arthritis
  59. CETIRIZINE [Suspect]
     Active Substance: CETIRIZINE HYDROCHLORIDE
     Dosage: 10 MILLIGRAM, QD (1 EVERY 1 DAY)
  60. CETIRIZINE [Suspect]
     Active Substance: CETIRIZINE HYDROCHLORIDE
  61. CETIRIZINE [Suspect]
     Active Substance: CETIRIZINE HYDROCHLORIDE
  62. CETIRIZINE [Suspect]
     Active Substance: CETIRIZINE HYDROCHLORIDE
  63. CETIRIZINE [Suspect]
     Active Substance: CETIRIZINE HYDROCHLORIDE
     Indication: Rheumatoid arthritis
  64. CETIRIZINE [Suspect]
     Active Substance: CETIRIZINE HYDROCHLORIDE
     Indication: Rheumatoid arthritis
  65. CETIRIZINE HYDROCHLORIDE [Suspect]
     Active Substance: CETIRIZINE HYDROCHLORIDE
     Indication: Rheumatoid arthritis
     Dosage: 10 MILLIGRAM, QD (1 EVERY 1 DAYS)
  66. CETIRIZINE HYDROCHLORIDE [Suspect]
     Active Substance: CETIRIZINE HYDROCHLORIDE
     Dosage: 25 MILLIGRAM, QD (1 EVERY 1 DAYS)
  67. CETIRIZINE HYDROCHLORIDE [Suspect]
     Active Substance: CETIRIZINE HYDROCHLORIDE
  68. CETIRIZINE HYDROCHLORIDE [Suspect]
     Active Substance: CETIRIZINE HYDROCHLORIDE
  69. CETIRIZINE HYDROCHLORIDE [Suspect]
     Active Substance: CETIRIZINE HYDROCHLORIDE
  70. CETIRIZINE HYDROCHLORIDE [Suspect]
     Active Substance: CETIRIZINE HYDROCHLORIDE
  71. CETIRIZINE HYDROCHLORIDE [Suspect]
     Active Substance: CETIRIZINE HYDROCHLORIDE
     Dosage: 10 MILLIGRAM, QD (1 EVERY 1 DAYS)
  72. CETIRIZINE HYDROCHLORIDE [Suspect]
     Active Substance: CETIRIZINE HYDROCHLORIDE
     Dosage: 25 MILLIGRAM, QD (1 EVERY 1 DAYS)
  73. CETIRIZINE HYDROCHLORIDE [Suspect]
     Active Substance: CETIRIZINE HYDROCHLORIDE
  74. CETIRIZINE HYDROCHLORIDE [Suspect]
     Active Substance: CETIRIZINE HYDROCHLORIDE
  75. CETIRIZINE HYDROCHLORIDE [Suspect]
     Active Substance: CETIRIZINE HYDROCHLORIDE
     Indication: Rheumatoid arthritis
  76. CHLORAPREP [Suspect]
     Active Substance: CHLORHEXIDINE GLUCONATE\ISOPROPYL ALCOHOL
     Indication: Product used for unknown indication
  77. CHLORAPREP [Suspect]
     Active Substance: CHLORHEXIDINE GLUCONATE\ISOPROPYL ALCOHOL
  78. CHLORAPREP [Suspect]
     Active Substance: CHLORHEXIDINE GLUCONATE\ISOPROPYL ALCOHOL
     Indication: Product used for unknown indication
  79. CHLORHEXIDINE [Suspect]
     Active Substance: CHLORHEXIDINE
     Indication: Product used for unknown indication
  80. CHLORHEXIDINE [Suspect]
     Active Substance: CHLORHEXIDINE
  81. CHOLECALCIFEROL [Suspect]
     Active Substance: CHOLECALCIFEROL
     Indication: Product used for unknown indication
  82. CHOLECALCIFEROL [Suspect]
     Active Substance: CHOLECALCIFEROL
  83. CIMZIA [Suspect]
     Active Substance: CERTOLIZUMAB PEGOL
     Indication: Rheumatoid arthritis
  84. CIMZIA [Suspect]
     Active Substance: CERTOLIZUMAB PEGOL
     Indication: Psoriasis
  85. CORTISONE [Suspect]
     Active Substance: CORTISONE
     Indication: Rheumatoid arthritis
  86. CORTISONE [Suspect]
     Active Substance: CORTISONE
     Dosage: 25 MILLIGRAM, QD (1 EVERY 1 DAYS)
  87. CORTISONE [Suspect]
     Active Substance: CORTISONE
  88. CORTISONE [Suspect]
     Active Substance: CORTISONE
     Indication: Rheumatoid arthritis
  89. CORTISONE [Suspect]
     Active Substance: CORTISONE
     Indication: Rheumatoid arthritis
  90. CORTISONE [Suspect]
     Active Substance: CORTISONE
     Indication: Rheumatoid arthritis
  91. CORTISONE [Suspect]
     Active Substance: CORTISONE
  92. COSENTYX [Suspect]
     Active Substance: SECUKINUMAB
     Indication: Product used for unknown indication
  93. DESOXIMETASONE [Suspect]
     Active Substance: DESOXIMETASONE
     Indication: Rheumatoid arthritis
  94. DESOXIMETASONE [Suspect]
     Active Substance: DESOXIMETASONE
  95. DESOXIMETASONE [Suspect]
     Active Substance: DESOXIMETASONE
  96. DESOXIMETASONE [Suspect]
     Active Substance: DESOXIMETASONE
     Indication: Rheumatoid arthritis
  97. DESOXIMETASONE [Suspect]
     Active Substance: DESOXIMETASONE
  98. DICLOFENAC DIETHYLAMINE [Suspect]
     Active Substance: DICLOFENAC DIETHYLAMINE
     Indication: Product used for unknown indication
  99. DICLOFENAC POTASSIUM [Suspect]
     Active Substance: DICLOFENAC POTASSIUM
     Indication: Product used for unknown indication
  100. DICLOFENAC POTASSIUM [Suspect]
     Active Substance: DICLOFENAC POTASSIUM
  101. DICLOFENAC POTASSIUM [Suspect]
     Active Substance: DICLOFENAC POTASSIUM
     Dosage: 50 MILLIGRAM, QD (1 EVERY 1 DAYS)
  102. DICLOFENAC POTASSIUM [Suspect]
     Active Substance: DICLOFENAC POTASSIUM
  103. DICLOFENAC POTASSIUM [Suspect]
     Active Substance: DICLOFENAC POTASSIUM
     Indication: Product used for unknown indication
  104. DICLOFENAC POTASSIUM [Suspect]
     Active Substance: DICLOFENAC POTASSIUM
     Indication: Product used for unknown indication
  105. DICLOFENAC SODIUM [Suspect]
     Active Substance: DICLOFENAC SODIUM
     Indication: Product used for unknown indication
  106. DICLOFENAC SODIUM [Suspect]
     Active Substance: DICLOFENAC SODIUM
  107. DICLOFENAC SODIUM [Suspect]
     Active Substance: DICLOFENAC SODIUM
  108. DICLOFENAC SODIUM [Suspect]
     Active Substance: DICLOFENAC SODIUM
     Indication: Rheumatoid arthritis
  109. DICLOFENAC SODIUM [Suspect]
     Active Substance: DICLOFENAC SODIUM
  110. DILTIAZEM [Suspect]
     Active Substance: DILTIAZEM
     Indication: Product used for unknown indication
  111. DILTIAZEM [Suspect]
     Active Substance: DILTIAZEM
  112. ENBREL [Suspect]
     Active Substance: ETANERCEPT
     Indication: Rheumatoid arthritis
  113. ENBREL [Suspect]
     Active Substance: ETANERCEPT
     Dosage: 20 MILLIGRAM, QW (1 EVERY 1 WEEKS)
  114. ENBREL [Suspect]
     Active Substance: ETANERCEPT
  115. ENBREL [Suspect]
     Active Substance: ETANERCEPT
  116. ENBREL [Suspect]
     Active Substance: ETANERCEPT
  117. ENBREL [Suspect]
     Active Substance: ETANERCEPT
     Dosage: 50 MILLIGRAM, QW  (1 EVERY 1 WEEKS)
  118. ENBREL [Suspect]
     Active Substance: ETANERCEPT
  119. ENBREL [Suspect]
     Active Substance: ETANERCEPT
     Dosage: 20 MILLIGRAM, QD (1 EVERY 1 DAYS)
  120. ENTYVIO [Suspect]
     Active Substance: VEDOLIZUMAB
     Indication: Product used for unknown indication
  121. ERELZI [Suspect]
     Active Substance: ETANERCEPT-SZZS
     Indication: Rheumatoid arthritis
  122. ERELZI [Suspect]
     Active Substance: ETANERCEPT-SZZS
  123. ERELZI [Suspect]
     Active Substance: ETANERCEPT-SZZS
  124. FLUMETHASONE PIVALATE [Suspect]
     Active Substance: FLUMETHASONE PIVALATE
     Indication: Rheumatoid arthritis
  125. FOLIC ACID [Suspect]
     Active Substance: FOLIC ACID
     Indication: Rheumatoid arthritis
  126. FOLIC ACID [Suspect]
     Active Substance: FOLIC ACID
     Indication: Rheumatoid arthritis
  127. FOLIC ACID [Suspect]
     Active Substance: FOLIC ACID
  128. FOLIC ACID [Suspect]
     Active Substance: FOLIC ACID
  129. FOLIC ACID [Suspect]
     Active Substance: FOLIC ACID
  130. FOLIC ACID [Suspect]
     Active Substance: FOLIC ACID
  131. FOLIC ACID [Suspect]
     Active Substance: FOLIC ACID
  132. FOLIC ACID [Suspect]
     Active Substance: FOLIC ACID
  133. FOLIC ACID [Suspect]
     Active Substance: FOLIC ACID
  134. FOLIC ACID [Suspect]
     Active Substance: FOLIC ACID
  135. FOLIC ACID [Suspect]
     Active Substance: FOLIC ACID
  136. FOLIC ACID [Suspect]
     Active Substance: FOLIC ACID
     Dosage: 1 MILLIGRAM, QD (1 EVERY 1 DAY)
  137. FOSAMAX [Suspect]
     Active Substance: ALENDRONATE SODIUM
     Indication: Rheumatoid arthritis
  138. GOLIMUMAB [Suspect]
     Active Substance: GOLIMUMAB
     Indication: Rheumatoid arthritis
  139. GOLIMUMAB [Suspect]
     Active Substance: GOLIMUMAB
  140. HYDROCORTISONE [Suspect]
     Active Substance: HYDROCORTISONE
     Indication: Product used for unknown indication
  141. HYDROCORTISONE [Suspect]
     Active Substance: HYDROCORTISONE
     Indication: Product used for unknown indication
  142. HYDROCORTISONE SODIUM SUCCINATE [Suspect]
     Active Substance: HYDROCORTISONE SODIUM SUCCINATE
     Indication: Rheumatoid arthritis
  143. HYDROCORTISONE SODIUM SUCCINATE [Suspect]
     Active Substance: HYDROCORTISONE SODIUM SUCCINATE
  144. HYDROCORTISONE SODIUM SUCCINATE [Suspect]
     Active Substance: HYDROCORTISONE SODIUM SUCCINATE
  145. HYDROXYCHLOROQUINE [Suspect]
     Active Substance: HYDROXYCHLOROQUINE
     Indication: Rheumatoid arthritis
  146. HYDROXYCHLOROQUINE [Suspect]
     Active Substance: HYDROXYCHLOROQUINE
  147. HYDROXYCHLOROQUINE [Suspect]
     Active Substance: HYDROXYCHLOROQUINE
  148. INFLIXIMAB [Suspect]
     Active Substance: INFLIXIMAB
     Indication: Rheumatoid arthritis
  149. INFLIXIMAB [Suspect]
     Active Substance: INFLIXIMAB
     Indication: Colitis ulcerative
  150. INFLIXIMAB [Suspect]
     Active Substance: INFLIXIMAB
  151. ISOPROPYL ALCOHOL [Suspect]
     Active Substance: ISOPROPYL ALCOHOL
     Indication: Product used for unknown indication
  152. ISOPROPYL ALCOHOL [Suspect]
     Active Substance: ISOPROPYL ALCOHOL
  153. KEVZARA [Suspect]
     Active Substance: SARILUMAB
     Indication: Rheumatoid arthritis
  154. LEFLUNOMIDE [Suspect]
     Active Substance: LEFLUNOMIDE
     Indication: Rheumatoid arthritis
  155. LEFLUNOMIDE [Suspect]
     Active Substance: LEFLUNOMIDE
  156. LEFLUNOMIDE [Suspect]
     Active Substance: LEFLUNOMIDE
     Indication: Rheumatoid arthritis
  157. LEFLUNOMIDE [Suspect]
     Active Substance: LEFLUNOMIDE
  158. LEFLUNOMIDE [Suspect]
     Active Substance: LEFLUNOMIDE
  159. METHOTREXATE [Suspect]
     Active Substance: METHOTREXATE
     Indication: Rheumatoid arthritis
     Dosage: 25 MILLIGRAM, QW (1 EVERY 1 WEEKS)
  160. METHOTREXATE [Suspect]
     Active Substance: METHOTREXATE
  161. METHOTREXATE [Suspect]
     Active Substance: METHOTREXATE
     Dosage: 25 MILLIGRAM, QD (1 EVERY 1 DAYS)
  162. METHOTREXATE [Suspect]
     Active Substance: METHOTREXATE
  163. METHOTREXATE [Suspect]
     Active Substance: METHOTREXATE
     Indication: Rheumatoid arthritis
     Dosage: 20 MILLIGRAM, QD ( 1 EVERY 1 DAYS)
  164. METHOTREXATE [Suspect]
     Active Substance: METHOTREXATE
     Dosage: 20 MILLIGRAM, QW (1 EVERY 1 WEEKS)
  165. METHOTREXATE [Suspect]
     Active Substance: METHOTREXATE
  166. METHOTREXATE [Suspect]
     Active Substance: METHOTREXATE
     Dosage: 20 MILLIGRAM, QD ( 1 EVERY 1 DAYS)
  167. METHOTREXATE [Suspect]
     Active Substance: METHOTREXATE
  168. METHOTREXATE [Suspect]
     Active Substance: METHOTREXATE
     Dosage: 25 MILLIGRAM, QD ( 1 EVERY 1 DAYS)
  169. METHOTREXATE [Suspect]
     Active Substance: METHOTREXATE
  170. METHOTREXATE [Suspect]
     Active Substance: METHOTREXATE
  171. METHOTREXATE [Suspect]
     Active Substance: METHOTREXATE
  172. METHOTREXATE [Suspect]
     Active Substance: METHOTREXATE
  173. METHOTREXATE [Suspect]
     Active Substance: METHOTREXATE
  174. METHOTREXATE [Suspect]
     Active Substance: METHOTREXATE
     Dosage: UNK, QD
  175. METHOTREXATE [Suspect]
     Active Substance: METHOTREXATE
     Dosage: 500 MILLIGRAM, BID ( 2 EVERY 1 DAYS)
  176. METHOTREXATE [Suspect]
     Active Substance: METHOTREXATE
     Dosage: 20 MILLIGRAM, QW (1 EVERY 1 WEEKS)
  177. METHOTREXATE [Suspect]
     Active Substance: METHOTREXATE
  178. METHOTREXATE [Suspect]
     Active Substance: METHOTREXATE
     Dosage: 2 GRAM, QW (1 EVERY 1 WEEKS)
  179. METHOTREXATE [Suspect]
     Active Substance: METHOTREXATE
     Indication: Rheumatoid arthritis
  180. MESALAMINE [Suspect]
     Active Substance: MESALAMINE
     Indication: Product used for unknown indication
  181. NAPROXEN [Suspect]
     Active Substance: NAPROXEN
     Indication: Product used for unknown indication
  182. ORENCIA [Suspect]
     Active Substance: ABATACEPT
     Indication: Rheumatoid arthritis
  183. ORENCIA [Suspect]
     Active Substance: ABATACEPT
     Dosage: 125 MILLIGRAM, QW (1 EVERY 1 WEEKS)
  184. ORENCIA [Suspect]
     Active Substance: ABATACEPT
  185. ORENCIA [Suspect]
     Active Substance: ABATACEPT
     Dosage: 120 MILLIGRAM, QW (1 EVERY 1 WEEKS)
  186. ORENCIA [Suspect]
     Active Substance: ABATACEPT
     Dosage: UNK, QW (1 EVERY 1 WEEKS)
  187. ORENCIA [Suspect]
     Active Substance: ABATACEPT
  188. ORENCIA [Suspect]
     Active Substance: ABATACEPT
  189. ORENCIA [Suspect]
     Active Substance: ABATACEPT
  190. ORENCIA [Suspect]
     Active Substance: ABATACEPT
     Dosage: 17.88 MILLIGRAM, QD (1 EVERY ONE DAY)
  191. ORENCIA [Suspect]
     Active Substance: ABATACEPT
  192. ORENCIA [Suspect]
     Active Substance: ABATACEPT
     Dosage: 18 MILLIGRAM, QD (1 EVERY 1 DAY)
  193. ORENCIA [Suspect]
     Active Substance: ABATACEPT
  194. ORENCIA [Suspect]
     Active Substance: ABATACEPT
     Dosage: 125 MILLIGRAM, QW (1 EVERY 1 WEEKS)
  195. ORENCIA [Suspect]
     Active Substance: ABATACEPT
  196. ORENCIA [Suspect]
     Active Substance: ABATACEPT
     Dosage: 17.86 MILLIGRAM, QD (1 EVERY ONE DAY)
  197. ORENCIA [Suspect]
     Active Substance: ABATACEPT
     Indication: Rheumatoid arthritis
  198. ORENCIA [Suspect]
     Active Substance: ABATACEPT
     Indication: Rheumatoid arthritis
  199. ORENCIA [Suspect]
     Active Substance: ABATACEPT
     Dosage: 125 MILLIGRAM, QW (1 EVERY 1 WEEKS)
  200. ORENCIA [Suspect]
     Active Substance: ABATACEPT
  201. ORENCIA [Suspect]
     Active Substance: ABATACEPT
  202. ORENCIA [Suspect]
     Active Substance: ABATACEPT
     Dosage: UNK, QW (1 EVERY 1 WEEKS)
  203. OTEZLA [Suspect]
     Active Substance: APREMILAST
     Indication: Product used for unknown indication
  204. OTEZLA [Suspect]
     Active Substance: APREMILAST
  205. OTEZLA [Suspect]
     Active Substance: APREMILAST
     Dosage: 6 MILLIGRAM, QD (1 EVERY 1 DAY)
  206. OTEZLA [Suspect]
     Active Substance: APREMILAST
  207. OTEZLA [Suspect]
     Active Substance: APREMILAST
     Dosage: 6 MILLIGRAM, QD (1 EVERY 1 DAY)
  208. OXYCODONE [Suspect]
     Active Substance: OXYCODONE
     Indication: Product used for unknown indication
  209. OXYCODONE HYDROCHLORIDE [Suspect]
     Active Substance: OXYCODONE HYDROCHLORIDE
     Indication: Product used for unknown indication
  210. OXYCODONE TEREPHTHALATE [Suspect]
     Active Substance: OXYCODONE TEREPHTHALATE
     Indication: Product used for unknown indication
  211. PANTOPRAZOLE [Suspect]
     Active Substance: PANTOPRAZOLE
     Indication: Product used for unknown indication
  212. PANTOPRAZOLE [Suspect]
     Active Substance: PANTOPRAZOLE
  213. PANTOPRAZOLE [Suspect]
     Active Substance: PANTOPRAZOLE
     Indication: Product used for unknown indication
  214. PERIOGARD [Suspect]
     Active Substance: CHLORHEXIDINE GLUCONATE
     Indication: Product used for unknown indication
  215. PERIOGARD [Suspect]
     Active Substance: CHLORHEXIDINE GLUCONATE
  216. PLAQUENIL [Suspect]
     Active Substance: HYDROXYCHLOROQUINE SULFATE
     Indication: Rheumatoid arthritis
     Dosage: 400 MILLIGRAM, QD ( 1 EVERY 1 DAYS)
  217. PLAQUENIL [Suspect]
     Active Substance: HYDROXYCHLOROQUINE SULFATE
  218. PLAQUENIL [Suspect]
     Active Substance: HYDROXYCHLOROQUINE SULFATE
     Dosage: 420 MILLIGRAM, QD ( 1 EVERY 1 DAYS)
  219. PREDNISONE [Suspect]
     Active Substance: PREDNISONE
     Indication: Rheumatoid arthritis
  220. PREDNISONE [Suspect]
     Active Substance: PREDNISONE
  221. PREDNISONE [Suspect]
     Active Substance: PREDNISONE
  222. PREDNISONE [Suspect]
     Active Substance: PREDNISONE
  223. PREDNISONE [Suspect]
     Active Substance: PREDNISONE
  224. PREDNISONE [Suspect]
     Active Substance: PREDNISONE
  225. PREDNISONE [Suspect]
     Active Substance: PREDNISONE
  226. PSEUDOEPHEDRINE [Suspect]
     Active Substance: PSEUDOEPHEDRINE
     Indication: Product used for unknown indication
  227. PSEUDOEPHEDRINE HYDROCHLORIDE [Suspect]
     Active Substance: PSEUDOEPHEDRINE HYDROCHLORIDE
     Indication: Rheumatoid arthritis
  228. PSEUDOEPHEDRINE HYDROCHLORIDE [Suspect]
     Active Substance: PSEUDOEPHEDRINE HYDROCHLORIDE
  229. CETIRIZINE HYDROCHLORIDE\PSEUDOEPHEDRINE HYDROCHLORIDE [Suspect]
     Active Substance: CETIRIZINE HYDROCHLORIDE\PSEUDOEPHEDRINE HYDROCHLORIDE
     Indication: Rheumatoid arthritis
  230. CETIRIZINE HYDROCHLORIDE\PSEUDOEPHEDRINE HYDROCHLORIDE [Suspect]
     Active Substance: CETIRIZINE HYDROCHLORIDE\PSEUDOEPHEDRINE HYDROCHLORIDE
     Indication: Rheumatoid arthritis
  231. CETIRIZINE HYDROCHLORIDE\PSEUDOEPHEDRINE HYDROCHLORIDE [Suspect]
     Active Substance: CETIRIZINE HYDROCHLORIDE\PSEUDOEPHEDRINE HYDROCHLORIDE
  232. CETIRIZINE HYDROCHLORIDE\PSEUDOEPHEDRINE HYDROCHLORIDE [Suspect]
     Active Substance: CETIRIZINE HYDROCHLORIDE\PSEUDOEPHEDRINE HYDROCHLORIDE
  233. REMICADE [Suspect]
     Active Substance: INFLIXIMAB
     Indication: Rheumatoid arthritis
  234. REMICADE [Suspect]
     Active Substance: INFLIXIMAB
     Indication: Psoriasis
  235. REMICADE [Suspect]
     Active Substance: INFLIXIMAB
     Indication: Crohn^s disease
  236. REMICADE [Suspect]
     Active Substance: INFLIXIMAB
     Indication: Colitis ulcerative
  237. REMICADE [Suspect]
     Active Substance: INFLIXIMAB
     Indication: Arthropathy
  238. REMICADE [Suspect]
     Active Substance: INFLIXIMAB
     Indication: Ankylosing spondylitis
  239. RINVOQ [Suspect]
     Active Substance: UPADACITINIB
     Indication: Product used for unknown indication
     Dosage: 15 MILLIGRAM, QD ( 1 EVERY 1 DAYS)
  240. RITUXIMAB [Suspect]
     Active Substance: RITUXIMAB
     Indication: Rheumatoid arthritis
  241. RITUXIMAB [Suspect]
     Active Substance: RITUXIMAB
  242. RITUXIMAB [Suspect]
     Active Substance: RITUXIMAB
     Indication: Rheumatoid arthritis
  243. RITUXIMAB [Suspect]
     Active Substance: RITUXIMAB
     Indication: Rheumatoid arthritis
  244. DIETARY SUPPLEMENT\HERBALS [Suspect]
     Active Substance: DIETARY SUPPLEMENT\HERBALS
     Indication: Product used for unknown indication
  245. SIMPONI [Suspect]
     Active Substance: GOLIMUMAB
     Indication: Rheumatoid arthritis
  246. SIMPONI [Suspect]
     Active Substance: GOLIMUMAB
     Indication: Rheumatoid arthritis
  247. SOLU-MEDROL [Suspect]
     Active Substance: METHYLPREDNISOLONE SODIUM SUCCINATE
     Indication: Product used for unknown indication
  248. STELARA [Suspect]
     Active Substance: USTEKINUMAB
     Indication: Rheumatoid arthritis
  249. SULFAMETHOXAZOLE [Suspect]
     Active Substance: SULFAMETHOXAZOLE
     Indication: Product used for unknown indication
  250. SULFAMETHOXAZOLE\TRIMETHOPRIM [Suspect]
     Active Substance: SULFAMETHOXAZOLE\TRIMETHOPRIM
     Indication: Product used for unknown indication
  251. SULFAMETHOXAZOLE\TRIMETHOPRIM [Suspect]
     Active Substance: SULFAMETHOXAZOLE\TRIMETHOPRIM
  252. SULFASALAZINE [Suspect]
     Active Substance: SULFASALAZINE
     Indication: Rheumatoid arthritis
     Dosage: 1 GRAM, QD
  253. SULFASALAZINE [Suspect]
     Active Substance: SULFASALAZINE
  254. SULFASALAZINE [Suspect]
     Active Substance: SULFASALAZINE
  255. SULFASALAZINE [Suspect]
     Active Substance: SULFASALAZINE
     Dosage: 500 MILLIGRAM, QD (1 EVERY 1 DAYS)
  256. SULFASALAZINE [Suspect]
     Active Substance: SULFASALAZINE
  257. SULFASALAZINE [Suspect]
     Active Substance: SULFASALAZINE
     Dosage: 1000 MILLIGRAM, QD (1 EVERY 1 DAYS)
  258. SULFASALAZINE [Suspect]
     Active Substance: SULFASALAZINE
  259. SULFASALAZINE [Suspect]
     Active Substance: SULFASALAZINE
     Dosage: 2000 MILLIGRAM, QD (1 EVERY 1 DAYS)
  260. SULFASALAZINE [Suspect]
     Active Substance: SULFASALAZINE
     Dosage: UNK, QD (1 EVERY 1 DAYS)
  261. SULFATHIAZOLE [Suspect]
     Active Substance: SULFATHIAZOLE
     Indication: Rheumatoid arthritis
  262. TOPICORT [Suspect]
     Active Substance: DESOXIMETASONE
     Indication: Rheumatoid arthritis
  263. TOPICORT [Suspect]
     Active Substance: DESOXIMETASONE
     Indication: Rheumatoid arthritis
  264. TOPICORT [Suspect]
     Active Substance: DESOXIMETASONE
     Indication: Rheumatoid arthritis
  265. TOPICORT [Suspect]
     Active Substance: DESOXIMETASONE
     Indication: Rheumatoid arthritis
  266. TRIAMCINOLONE [Suspect]
     Active Substance: TRIAMCINOLONE
     Indication: Rheumatoid arthritis
  267. VITAMIN C [Suspect]
     Active Substance: ASCORBIC ACID
     Indication: Product used for unknown indication
  268. VOLTAREN [Suspect]
     Active Substance: DICLOFENAC SODIUM
     Indication: Product used for unknown indication
  269. PREDNISONE [Suspect]
     Active Substance: PREDNISONE
     Indication: Rheumatoid arthritis
  270. XELJANZ [Suspect]
     Active Substance: TOFACITINIB CITRATE
     Indication: Rheumatoid arthritis
  271. XELJANZ [Suspect]
     Active Substance: TOFACITINIB CITRATE
     Dosage: 5 MILLIGRAM, QD (1 EVERY 1 DAYS)
  272. XELJANZ [Suspect]
     Active Substance: TOFACITINIB CITRATE
     Dosage: 10 MILLIGRAM, QD (1 EVERY 1 DAYS)
  273. XELJANZ [Suspect]
     Active Substance: TOFACITINIB CITRATE
     Dosage: 10 MILLIGRAM, QD (1 EVERY 1 DAYS)
  274. ACETAMINOPHEN [Suspect]
     Active Substance: ACETAMINOPHEN
     Indication: Rheumatoid arthritis
  275. ACETAMINOPHEN [Suspect]
     Active Substance: ACETAMINOPHEN
  276. ACETAMINOPHEN\CODEINE PHOSPHATE [Suspect]
     Active Substance: ACETAMINOPHEN\CODEINE PHOSPHATE
     Indication: Product used for unknown indication
  277. ACETAMINOPHEN\OXYCODONE HYDROCHLORIDE [Suspect]
     Active Substance: ACETAMINOPHEN\OXYCODONE HYDROCHLORIDE
     Indication: Rheumatoid arthritis
  278. ACTEMRA [Suspect]
     Active Substance: TOCILIZUMAB
     Indication: Rheumatoid arthritis
     Dosage: 728.8 MILLIGRAM, MONTHLY (1 EVERY 1 MONTHS)
  279. ACTEMRA [Suspect]
     Active Substance: TOCILIZUMAB
  280. ACTEMRA [Suspect]
     Active Substance: TOCILIZUMAB
     Dosage: 752.8 MILLIGRAM, QW (1 EVERY 1 WEEKS)
  281. ACTEMRA [Suspect]
     Active Substance: TOCILIZUMAB
  282. ACTEMRA [Suspect]
     Active Substance: TOCILIZUMAB
  283. ACTEMRA [Suspect]
     Active Substance: TOCILIZUMAB
  284. ACTEMRA [Suspect]
     Active Substance: TOCILIZUMAB
     Indication: Rheumatoid arthritis
  285. DICLOFENAC SODIUM [Suspect]
     Active Substance: DICLOFENAC SODIUM
     Indication: Product used for unknown indication
  286. APREPITANT [Suspect]
     Active Substance: APREPITANT
     Indication: Product used for unknown indication
  287. ASACOL [Suspect]
     Active Substance: MESALAMINE
     Indication: Rheumatoid arthritis
  288. AZATHIOPRINE [Suspect]
     Active Substance: AZATHIOPRINE
     Indication: Product used for unknown indication
  289. AZULFIDINE [Suspect]
     Active Substance: SULFASALAZINE
     Indication: Rheumatoid arthritis
  290. CALCIUM CHLORIDE [Suspect]
     Active Substance: CALCIUM CHLORIDE
     Indication: Product used for unknown indication
  291. CALCIUM CITRATE [Suspect]
     Active Substance: CALCIUM CITRATE
     Indication: Product used for unknown indication
  292. APREMILAST [Suspect]
     Active Substance: APREMILAST
     Indication: Product used for unknown indication
     Dosage: 6 MILLIGRAM, QD (1 EVERY 1 DAY)
  293. CETIRIZINE [Suspect]
     Active Substance: CETIRIZINE HYDROCHLORIDE
     Indication: Rheumatoid arthritis
  294. CETIRIZINE [Suspect]
     Active Substance: CETIRIZINE HYDROCHLORIDE
     Indication: Rheumatoid arthritis
  295. CETIRIZINE [Suspect]
     Active Substance: CETIRIZINE HYDROCHLORIDE
     Indication: Rheumatoid arthritis
  296. CETIRIZINE [Suspect]
     Active Substance: CETIRIZINE HYDROCHLORIDE
  297. CETIRIZINE [Suspect]
     Active Substance: CETIRIZINE HYDROCHLORIDE
  298. CETIRIZINE [Suspect]
     Active Substance: CETIRIZINE HYDROCHLORIDE
  299. CETIRIZINE [Suspect]
     Active Substance: CETIRIZINE HYDROCHLORIDE
  300. CHLORHEXIDINE [Suspect]
     Active Substance: CHLORHEXIDINE
     Indication: Rheumatoid arthritis
  301. CHLORHEXIDINE [Suspect]
     Active Substance: CHLORHEXIDINE
     Indication: Rheumatoid arthritis
  302. CHLORHEXIDINE [Suspect]
     Active Substance: CHLORHEXIDINE
     Indication: Rheumatoid arthritis
  303. CHLORHEXIDINE GLUCONATE [Suspect]
     Active Substance: CHLORHEXIDINE GLUCONATE
     Indication: Product used for unknown indication
  304. CHLORHEXIDINE GLUCONATE [Suspect]
     Active Substance: CHLORHEXIDINE GLUCONATE
     Indication: Product used for unknown indication
  305. CHLORHEXIDINE GLUCONATE [Suspect]
     Active Substance: CHLORHEXIDINE GLUCONATE
     Indication: Product used for unknown indication
  306. CHLORHEXIDINE GLUCONATE\ISOPROPYL ALCOHOL [Suspect]
     Active Substance: CHLORHEXIDINE GLUCONATE\ISOPROPYL ALCOHOL
     Indication: Product used for unknown indication
  307. CHLORHEXIDINE GLUCONATE\ISOPROPYL ALCOHOL [Suspect]
     Active Substance: CHLORHEXIDINE GLUCONATE\ISOPROPYL ALCOHOL
  308. CIMZIA [Suspect]
     Active Substance: CERTOLIZUMAB PEGOL
     Indication: Rheumatoid arthritis
  309. CIMZIA [Suspect]
     Active Substance: CERTOLIZUMAB PEGOL
     Dosage: 1 DOSAGE FORM, QD (1 EVERY 1 DAYS)
  310. CIMZIA [Suspect]
     Active Substance: CERTOLIZUMAB PEGOL
  311. CIMZIA [Suspect]
     Active Substance: CERTOLIZUMAB PEGOL
  312. CIMZIA [Suspect]
     Active Substance: CERTOLIZUMAB PEGOL
     Indication: Rheumatoid arthritis
  313. CLIOQUINOL [Suspect]
     Active Substance: CLIOQUINOL
     Indication: Product used for unknown indication
  314. CORTISONE ACETATE [Suspect]
     Active Substance: CORTISONE ACETATE
     Indication: Rheumatoid arthritis
  315. CORTISONE ACETATE [Suspect]
     Active Substance: CORTISONE ACETATE
  316. CORTISONE ACETATE [Suspect]
     Active Substance: CORTISONE ACETATE
  317. CORTISONE ACETATE [Suspect]
     Active Substance: CORTISONE ACETATE
     Indication: Rheumatoid arthritis
  318. CORTISONE ACETATE [Suspect]
     Active Substance: CORTISONE ACETATE
     Indication: Rheumatoid arthritis
  319. CORTISONE ACETATE [Suspect]
     Active Substance: CORTISONE ACETATE
  320. DESOGESTREL\ETHINYL ESTRADIOL [Suspect]
     Active Substance: DESOGESTREL\ETHINYL ESTRADIOL
     Indication: Product used for unknown indication
  321. DESOXIMETASONE [Suspect]
     Active Substance: DESOXIMETASONE
     Indication: Product used for unknown indication
  322. DESOXIMETASONE [Suspect]
     Active Substance: DESOXIMETASONE
     Indication: Rheumatoid arthritis
  323. DESOXIMETASONE [Suspect]
     Active Substance: DESOXIMETASONE
     Indication: Rheumatoid arthritis
  324. DESOXIMETASONE [Suspect]
     Active Substance: DESOXIMETASONE
  325. DESOXIMETASONE [Suspect]
     Active Substance: DESOXIMETASONE
  326. DESOXIMETASONE [Suspect]
     Active Substance: DESOXIMETASONE
  327. DESOXIMETASONE [Suspect]
     Active Substance: DESOXIMETASONE
  328. DICLOFENAC [Suspect]
     Active Substance: DICLOFENAC
     Indication: Product used for unknown indication
  329. DICLOFENAC [Suspect]
     Active Substance: DICLOFENAC
  330. DICLOFENAC POTASSIUM [Suspect]
     Active Substance: DICLOFENAC POTASSIUM
     Indication: Rheumatoid arthritis
  331. DICLOFENAC POTASSIUM [Suspect]
     Active Substance: DICLOFENAC POTASSIUM
  332. DICLOFENAC POTASSIUM [Suspect]
     Active Substance: DICLOFENAC POTASSIUM
  333. DICLOFENAC POTASSIUM [Suspect]
     Active Substance: DICLOFENAC POTASSIUM
     Dosage: 50 MILLIGRAM, QD (1 EVERY 1 DAY)
  334. DICLOFENAC POTASSIUM [Suspect]
     Active Substance: DICLOFENAC POTASSIUM
  335. DICLOFENAC POTASSIUM [Suspect]
     Active Substance: DICLOFENAC POTASSIUM
  336. DICLOFENAC POTASSIUM [Suspect]
     Active Substance: DICLOFENAC POTASSIUM
  337. DILTIAZEM HYDROCHLORIDE [Suspect]
     Active Substance: DILTIAZEM HYDROCHLORIDE
     Indication: Rheumatoid arthritis
  338. ENBREL [Suspect]
     Active Substance: ETANERCEPT
     Indication: Rheumatoid arthritis
  339. ENBREL [Suspect]
     Active Substance: ETANERCEPT
     Indication: Rheumatoid arthritis
  340. ENTYVIO [Suspect]
     Active Substance: VEDOLIZUMAB
     Indication: Product used for unknown indication
  341. FOLIC ACID [Suspect]
     Active Substance: FOLIC ACID
     Indication: Rheumatoid arthritis
  342. FOLIC ACID [Suspect]
     Active Substance: FOLIC ACID
  343. HUMIRA [Suspect]
     Active Substance: ADALIMUMAB
     Indication: Rheumatoid arthritis
  344. HUMIRA [Suspect]
     Active Substance: ADALIMUMAB
  345. HUMIRA [Suspect]
     Active Substance: ADALIMUMAB
  346. HUMIRA [Suspect]
     Active Substance: ADALIMUMAB
  347. HYDROCORTISONE [Suspect]
     Active Substance: HYDROCORTISONE
     Indication: Rheumatoid arthritis
  348. HYDROCORTISONE [Suspect]
     Active Substance: HYDROCORTISONE
  349. HYDROCORTISONE SODIUM SUCCINATE [Suspect]
     Active Substance: HYDROCORTISONE SODIUM SUCCINATE
     Indication: Rheumatoid arthritis
  350. HYDROCORTISONE SODIUM SUCCINATE [Suspect]
     Active Substance: HYDROCORTISONE SODIUM SUCCINATE
  351. HYDROCORTISONE SODIUM SUCCINATE [Suspect]
     Active Substance: HYDROCORTISONE SODIUM SUCCINATE
  352. HYDROXYCHLOROQUINE SULFATE [Suspect]
     Active Substance: HYDROXYCHLOROQUINE SULFATE
     Indication: Rheumatoid arthritis
  353. HYDROXYCHLOROQUINE SULFATE [Suspect]
     Active Substance: HYDROXYCHLOROQUINE SULFATE
  354. HYDROXYCHLOROQUINE SULFATE [Suspect]
     Active Substance: HYDROXYCHLOROQUINE SULFATE
  355. HYDROXYCHLOROQUINE SULFATE [Suspect]
     Active Substance: HYDROXYCHLOROQUINE SULFATE
  356. INDOMETHACIN [Suspect]
     Active Substance: INDOMETHACIN
     Indication: Product used for unknown indication
  357. INFLIXIMAB [Suspect]
     Active Substance: INFLIXIMAB
     Indication: Rheumatoid arthritis
  358. INFLIXIMAB [Suspect]
     Active Substance: INFLIXIMAB
  359. INFLIXIMAB [Suspect]
     Active Substance: INFLIXIMAB
  360. LEFLUNOMIDE [Suspect]
     Active Substance: LEFLUNOMIDE
     Indication: Product used for unknown indication
  361. LEFLUNOMIDE [Suspect]
     Active Substance: LEFLUNOMIDE
  362. METHOTREXATE [Suspect]
     Active Substance: METHOTREXATE
     Indication: Rheumatoid arthritis
  363. METHOTREXATE [Suspect]
     Active Substance: METHOTREXATE
  364. METHOTREXATE [Suspect]
     Active Substance: METHOTREXATE
  365. METHOTREXATE [Suspect]
     Active Substance: METHOTREXATE
     Dosage: 20 MILLIGRAM, QW (1 EVERY 1 WEEKS)
  366. METHOTREXATE [Suspect]
     Active Substance: METHOTREXATE
  367. METHOTREXATE [Suspect]
     Active Substance: METHOTREXATE
  368. METHOTREXATE [Suspect]
     Active Substance: METHOTREXATE
     Dosage: 20 MILLIGRAM, QD (1 EVERY 1 DAYS)
  369. METHOTREXATE [Suspect]
     Active Substance: METHOTREXATE
  370. METHOTREXATE [Suspect]
     Active Substance: METHOTREXATE
  371. METHOTREXATE [Suspect]
     Active Substance: METHOTREXATE
  372. METHOTREXATE [Suspect]
     Active Substance: METHOTREXATE
     Dosage: 15 MILLIGRAM, QD (1 EVERY ONE DAY)
  373. METHOTREXATE [Suspect]
     Active Substance: METHOTREXATE
  374. METHOTREXATE [Suspect]
     Active Substance: METHOTREXATE
     Dosage: 20 MILLIGRAM, QD (1 EVERY 1 DAYS)
  375. METHOTREXATE [Suspect]
     Active Substance: METHOTREXATE
     Dosage: 25 MILLIGRAM, QD (1 EVERY 1 DAYS)
  376. METHOTREXATE [Suspect]
     Active Substance: METHOTREXATE
  377. METHOTREXATE [Suspect]
     Active Substance: METHOTREXATE
  378. METHOTREXATE [Suspect]
     Active Substance: METHOTREXATE
  379. METHOTREXATE [Suspect]
     Active Substance: METHOTREXATE
  380. METHOTREXATE [Suspect]
     Active Substance: METHOTREXATE
     Indication: Rheumatoid arthritis
  381. METHOTREXATE [Suspect]
     Active Substance: METHOTREXATE
     Indication: Rheumatoid arthritis
  382. NAPROXEN SODIUM [Suspect]
     Active Substance: NAPROXEN SODIUM
     Indication: Rheumatoid arthritis
  383. NAPROXEN SODIUM [Suspect]
     Active Substance: NAPROXEN SODIUM
     Dosage: 1000 MILLIGRAM, QD (1 EVERY 1 DAYS)
  384. OTEZLA [Suspect]
     Active Substance: APREMILAST
     Indication: Product used for unknown indication
  385. OTEZLA [Suspect]
     Active Substance: APREMILAST
  386. OTEZLA [Suspect]
     Active Substance: APREMILAST
  387. OTEZLA [Suspect]
     Active Substance: APREMILAST
  388. OTEZLA [Suspect]
     Active Substance: APREMILAST
  389. OXYCODONE [Suspect]
     Active Substance: OXYCODONE
     Indication: Product used for unknown indication
  390. PANTOPRAZOLE SODIUM [Suspect]
     Active Substance: PANTOPRAZOLE SODIUM
     Indication: Product used for unknown indication
  391. PANTOPRAZOLE SODIUM [Suspect]
     Active Substance: PANTOPRAZOLE SODIUM
  392. PARA-AMINOSALICYLIC ACID [Suspect]
     Active Substance: AMINOSALICYLIC ACID
     Indication: Product used for unknown indication
  393. PHTHALYLSULFATHIAZOLE [Suspect]
     Active Substance: PHTHALYLSULFATHIAZOLE
     Indication: Rheumatoid arthritis
  394. PHTHALYLSULFATHIAZOLE [Suspect]
     Active Substance: PHTHALYLSULFATHIAZOLE
  395. PHTHALYLSULFATHIAZOLE [Suspect]
     Active Substance: PHTHALYLSULFATHIAZOLE
  396. PHTHALYLSULFATHIAZOLE [Suspect]
     Active Substance: PHTHALYLSULFATHIAZOLE
  397. PHTHALYLSULFATHIAZOLE [Suspect]
     Active Substance: PHTHALYLSULFATHIAZOLE
     Dosage: 400 MILLIGRAM, QD (1 EVERY 1 DAYS)
  398. PHTHALYLSULFATHIAZOLE [Suspect]
     Active Substance: PHTHALYLSULFATHIAZOLE
     Dosage: 2000 MILLIGRAM, QD (1 EVERY 1 DAY)
  399. PHTHALYLSULFATHIAZOLE [Suspect]
     Active Substance: PHTHALYLSULFATHIAZOLE
     Dosage: 1000 MILLIGRAM, QD (1 EVERY 1 DAYS)
  400. PHTHALYLSULFATHIAZOLE [Suspect]
     Active Substance: PHTHALYLSULFATHIAZOLE
     Dosage: UNK, QD (1 EVERY 1 DAYS)
  401. PHTHALYLSULFATHIAZOLE [Suspect]
     Active Substance: PHTHALYLSULFATHIAZOLE
     Dosage: 2000 MILLIGRAM, QD (1 EVERY 1 DAY)
  402. PREDNISOLONE [Suspect]
     Active Substance: PREDNISOLONE
     Indication: Product used for unknown indication
  403. PREDNISOLONE [Suspect]
     Active Substance: PREDNISOLONE
  404. PREDNISOLONE [Suspect]
     Active Substance: PREDNISOLONE
  405. PREDNISOLONE [Suspect]
     Active Substance: PREDNISOLONE
     Indication: Product used for unknown indication
  406. PSEUDOEPHEDRINE [Suspect]
     Active Substance: PSEUDOEPHEDRINE
     Indication: Rheumatoid arthritis
  407. PSEUDOEPHEDRINE HYDROCHLORIDE [Suspect]
     Active Substance: PSEUDOEPHEDRINE HYDROCHLORIDE
     Indication: Product used for unknown indication
  408. PSEUDOEPHEDRINE HYDROCHLORIDE [Suspect]
     Active Substance: PSEUDOEPHEDRINE HYDROCHLORIDE
  409. PSEUDOEPHEDRINE HYDROCHLORIDE\TRIPROLIDINE HYDROCHLORIDE [Suspect]
     Active Substance: PSEUDOEPHEDRINE HYDROCHLORIDE\TRIPROLIDINE HYDROCHLORIDE
     Indication: Product used for unknown indication
  410. CETIRIZINE HYDROCHLORIDE\PSEUDOEPHEDRINE HYDROCHLORIDE [Suspect]
     Active Substance: CETIRIZINE HYDROCHLORIDE\PSEUDOEPHEDRINE HYDROCHLORIDE
     Indication: Rheumatoid arthritis
  411. REMICADE [Suspect]
     Active Substance: INFLIXIMAB
     Indication: Rheumatoid arthritis
  412. REMICADE [Suspect]
     Active Substance: INFLIXIMAB
     Indication: Psoriatic arthropathy
  413. REMICADE [Suspect]
     Active Substance: INFLIXIMAB
     Indication: Psoriasis
  414. REMICADE [Suspect]
     Active Substance: INFLIXIMAB
     Indication: Crohn^s disease
  415. REMICADE [Suspect]
     Active Substance: INFLIXIMAB
     Indication: Ankylosing spondylitis
  416. SULFASALAZINE [Suspect]
     Active Substance: SULFASALAZINE
     Indication: Product used for unknown indication
  417. SECUKINUMAB [Suspect]
     Active Substance: SECUKINUMAB
     Indication: Product used for unknown indication
  418. SULFAMETHOXAZOLE [Suspect]
     Active Substance: SULFAMETHOXAZOLE
     Indication: Rheumatoid arthritis
  419. SULFAMETHOXAZOLE [Suspect]
     Active Substance: SULFAMETHOXAZOLE
  420. SULFASALAZINE [Suspect]
     Active Substance: SULFASALAZINE
     Indication: Rheumatoid arthritis
  421. SULFASALAZINE [Suspect]
     Active Substance: SULFASALAZINE
  422. SULFASALAZINE [Suspect]
     Active Substance: SULFASALAZINE
  423. SULFASALAZINE [Suspect]
     Active Substance: SULFASALAZINE
  424. SULFASALAZINE [Suspect]
     Active Substance: SULFASALAZINE
  425. SULFASALAZINE [Suspect]
     Active Substance: SULFASALAZINE
  426. SULFASALAZINE [Suspect]
     Active Substance: SULFASALAZINE
  427. SULFASALAZINE [Suspect]
     Active Substance: SULFASALAZINE
  428. SULFASALAZINE [Suspect]
     Active Substance: SULFASALAZINE
  429. SULFASALAZINE [Suspect]
     Active Substance: SULFASALAZINE
  430. SULFASALAZINE [Suspect]
     Active Substance: SULFASALAZINE
  431. SULFASALAZINE [Suspect]
     Active Substance: SULFASALAZINE
  432. SULFASALAZINE [Suspect]
     Active Substance: SULFASALAZINE
  433. SULFASALAZINE [Suspect]
     Active Substance: SULFASALAZINE
  434. TOCILIZUMAB [Suspect]
     Active Substance: TOCILIZUMAB
     Indication: Rheumatoid arthritis
  435. TOCILIZUMAB [Suspect]
     Active Substance: TOCILIZUMAB
  436. TOCILIZUMAB [Suspect]
     Active Substance: TOCILIZUMAB
  437. TOCILIZUMAB [Suspect]
     Active Substance: TOCILIZUMAB
  438. TOCILIZUMAB [Suspect]
     Active Substance: TOCILIZUMAB
  439. TOCILIZUMAB [Suspect]
     Active Substance: TOCILIZUMAB
  440. TOCILIZUMAB [Suspect]
     Active Substance: TOCILIZUMAB
  441. TOCILIZUMAB [Suspect]
     Active Substance: TOCILIZUMAB
  442. TOCILIZUMAB [Suspect]
     Active Substance: TOCILIZUMAB
  443. TOCILIZUMAB [Suspect]
     Active Substance: TOCILIZUMAB
  444. TOCILIZUMAB [Suspect]
     Active Substance: TOCILIZUMAB
     Dosage: 752 MILLIGRAM, QD (1 EVERY 1 DAY)
  445. TOFACITINIB CITRATE [Suspect]
     Active Substance: TOFACITINIB CITRATE
     Indication: Rheumatoid arthritis
  446. TOFACITINIB CITRATE [Suspect]
     Active Substance: TOFACITINIB CITRATE
     Dosage: 5 MILLIGRAM, QW (1 EVERY 1 WEEKS)
  447. TOFACITINIB CITRATE [Suspect]
     Active Substance: TOFACITINIB CITRATE
     Dosage: 10 MILLIGRAM, QW (1 EVERY 1 WEEKS)
  448. TOFACITINIB CITRATE [Suspect]
     Active Substance: TOFACITINIB CITRATE
  449. TOFACITINIB CITRATE [Suspect]
     Active Substance: TOFACITINIB CITRATE
  450. TRUXIMA [Suspect]
     Active Substance: RITUXIMAB-ABBS
     Indication: Rheumatoid arthritis
  451. TRUXIMA [Suspect]
     Active Substance: RITUXIMAB-ABBS
     Indication: Abdominal discomfort
  452. TRUXIMA [Suspect]
     Active Substance: RITUXIMAB-ABBS
     Indication: Rheumatoid arthritis
  453. TRUXIMA [Suspect]
     Active Substance: RITUXIMAB-ABBS
     Indication: Abdominal discomfort
  454. VITAMIN D3 [Suspect]
     Active Substance: CHOLECALCIFEROL
     Indication: Product used for unknown indication
  455. XELJANZ [Suspect]
     Active Substance: TOFACITINIB CITRATE
     Indication: Product used for unknown indication
  456. XELJANZ [Suspect]
     Active Substance: TOFACITINIB CITRATE
  457. XELJANZ [Suspect]
     Active Substance: TOFACITINIB CITRATE
  458. CALCIUM GLUCONATE [Concomitant]
     Active Substance: CALCIUM GLUCONATE
  459. CETIRIZINE HYDROCHLORIDE [Concomitant]
     Active Substance: CETIRIZINE HYDROCHLORIDE
  460. CETIRIZINE HYDROCHLORIDE [Concomitant]
     Active Substance: CETIRIZINE HYDROCHLORIDE
  461. CETIRIZINE HYDROCHLORIDE [Concomitant]
     Active Substance: CETIRIZINE HYDROCHLORIDE
  462. ERGOCALCIFEROL [Concomitant]
     Active Substance: ERGOCALCIFEROL
  463. GLUCOSAMINE [Concomitant]
     Active Substance: GLUCOSAMINE
  464. IBUPROFEN [Concomitant]
     Active Substance: IBUPROFEN
  465. LANSOPRAZOLE [Concomitant]
     Active Substance: LANSOPRAZOLE
  466. LORAZEPAM [Concomitant]
     Active Substance: LORAZEPAM
  467. QUETIAPINE FUMARATE [Concomitant]
     Active Substance: QUETIAPINE FUMARATE
  468. FISH OIL [Concomitant]
     Active Substance: FISH OIL
  469. TYLENOL [Concomitant]
     Active Substance: ACETAMINOPHEN
  470. TYLENOL WITH CODEINE [Concomitant]
     Active Substance: ACETAMINOPHEN\CODEINE PHOSPHATE
  471. VITAMIN C [Concomitant]
     Active Substance: ASCORBIC ACID
  472. ZOPICLONE [Concomitant]
     Active Substance: ZOPICLONE

REACTIONS (151)
  - Abdominal discomfort [Fatal]
  - Abdominal pain upper [Fatal]
  - Adjustment disorder with depressed mood [Fatal]
  - Alopecia [Fatal]
  - Amnesia [Fatal]
  - Anti-cyclic citrullinated peptide antibody positive [Fatal]
  - Arthralgia [Fatal]
  - Arthropathy [Fatal]
  - Back disorder [Fatal]
  - Blister [Fatal]
  - Blood cholesterol increased [Fatal]
  - Breast cancer stage II [Fatal]
  - Breast cancer stage III [Fatal]
  - Bursitis [Fatal]
  - Chest pain [Fatal]
  - Colitis ulcerative [Fatal]
  - Condition aggravated [Fatal]
  - Confusional state [Fatal]
  - Contusion [Fatal]
  - Crohn^s disease [Fatal]
  - Decreased appetite [Fatal]
  - Delirium [Fatal]
  - Depression [Fatal]
  - Diarrhoea [Fatal]
  - Disability [Fatal]
  - Discomfort [Fatal]
  - Dislocation of vertebra [Fatal]
  - Dizziness [Fatal]
  - Drug hypersensitivity [Fatal]
  - Drug ineffective [Fatal]
  - Drug intolerance [Fatal]
  - Drug-induced liver injury [Fatal]
  - Dry mouth [Fatal]
  - Duodenal ulcer perforation [Fatal]
  - Dyspepsia [Fatal]
  - Dyspnoea [Fatal]
  - Ear infection [Fatal]
  - Exostosis [Fatal]
  - Facet joint syndrome [Fatal]
  - Fatigue [Fatal]
  - Feeling hot [Fatal]
  - Fibromyalgia [Fatal]
  - Fluid retention [Fatal]
  - Folliculitis [Fatal]
  - Foot deformity [Fatal]
  - Frequent bowel movements [Fatal]
  - Gait disturbance [Fatal]
  - Gait inability [Fatal]
  - Gastrointestinal disorder [Fatal]
  - General physical health deterioration [Fatal]
  - General symptom [Fatal]
  - Glossodynia [Fatal]
  - Grip strength decreased [Fatal]
  - Hand deformity [Fatal]
  - Headache [Fatal]
  - Helicobacter infection [Fatal]
  - Hepatic enzyme increased [Fatal]
  - Hip arthroplasty [Fatal]
  - Hypercholesterolaemia [Fatal]
  - Hypersensitivity [Fatal]
  - Hypertension [Fatal]
  - Hypoaesthesia [Fatal]
  - Ill-defined disorder [Fatal]
  - Impaired healing [Fatal]
  - Infection [Fatal]
  - Inflammation [Fatal]
  - Infusion related reaction [Fatal]
  - Injury [Fatal]
  - Irritable bowel syndrome [Fatal]
  - Joint dislocation [Fatal]
  - Joint range of motion decreased [Fatal]
  - Joint swelling [Fatal]
  - Knee arthroplasty [Fatal]
  - Laryngitis [Fatal]
  - Live birth [Fatal]
  - Liver disorder [Fatal]
  - Liver injury [Fatal]
  - Lower respiratory tract infection [Fatal]
  - Lung disorder [Fatal]
  - Lupus-like syndrome [Fatal]
  - Malaise [Fatal]
  - Memory impairment [Fatal]
  - Migraine [Fatal]
  - Mobility decreased [Fatal]
  - Muscle injury [Fatal]
  - Muscle spasms [Fatal]
  - Musculoskeletal pain [Fatal]
  - Musculoskeletal stiffness [Fatal]
  - Myositis [Fatal]
  - Nasopharyngitis [Fatal]
  - Nausea [Fatal]
  - Night sweats [Fatal]
  - Obesity [Fatal]
  - Oedema [Fatal]
  - Oedema peripheral [Fatal]
  - Osteoarthritis [Fatal]
  - Osteoporosis [Fatal]
  - Pain [Fatal]
  - Pain in extremity [Fatal]
  - Paraesthesia [Fatal]
  - Pemphigus [Fatal]
  - Pericarditis [Fatal]
  - Peripheral swelling [Fatal]
  - Peripheral venous disease [Fatal]
  - Pneumonia [Fatal]
  - Porphyria acute [Fatal]
  - Pruritus [Fatal]
  - Psoriasis [Fatal]
  - Psoriatic arthropathy [Fatal]
  - Pulmonary fibrosis [Fatal]
  - Pustular psoriasis [Fatal]
  - Pyrexia [Fatal]
  - Rash [Fatal]
  - Rash vesicular [Fatal]
  - Red blood cell sedimentation rate increased [Fatal]
  - Retinitis [Fatal]
  - Rheumatic fever [Fatal]
  - Rheumatoid arthritis [Fatal]
  - Rheumatoid factor positive [Fatal]
  - Road traffic accident [Fatal]
  - Sciatica [Fatal]
  - Sinusitis [Fatal]
  - Sleep disorder [Fatal]
  - Sleep disorder due to general medical condition, insomnia type [Fatal]
  - Stomatitis [Fatal]
  - Subcutaneous drug absorption impaired [Fatal]
  - Swelling [Fatal]
  - Swollen joint count increased [Fatal]
  - Synovitis [Fatal]
  - Systemic lupus erythematosus [Fatal]
  - Tachycardia [Fatal]
  - Thrombocytopenia [Fatal]
  - Type 2 diabetes mellitus [Fatal]
  - Urticaria [Fatal]
  - Visual impairment [Fatal]
  - Vomiting [Fatal]
  - Walking aid user [Fatal]
  - Weight decreased [Fatal]
  - Weight increased [Fatal]
  - Wheezing [Fatal]
  - Wound [Fatal]
  - Wound infection [Fatal]
  - Upper respiratory tract infection [Fatal]
  - X-ray abnormal [Fatal]
  - Maternal exposure during pregnancy [Fatal]
  - Contraindicated product administered [Fatal]
  - Maternal exposure timing unspecified [Fatal]
  - Off label use [Fatal]
  - Prescribed overdose [Fatal]
  - Prescribed underdose [Fatal]
  - Product use in unapproved indication [Fatal]
